FAERS Safety Report 6785213-6 (Version None)
Quarter: 2010Q2

REPORT INFORMATION
  Report Type: 
  Country: None (occurrence: None)
  Receive Date: 20100622
  Receipt Date: 20100622
  Transmission Date: 20101027
  Serious: Yes (Hospitalization)
  Sender: FDA-Public Use
  Company Number: None

PATIENT
  Age: 61 Year
  Sex: Female
  Weight: 97 kg

DRUGS (11)
  1. COUMADIN [Suspect]
     Indication: DEEP VEIN THROMBOSIS
     Dosage: 2MG DAILY PO (CHRONIC)
     Route: 048
  2. PROZAC [Concomitant]
  3. FISH OIL [Concomitant]
  4. FOLIC ACID [Concomitant]
  5. TRAMADOL HCL [Concomitant]
  6. LOPID [Concomitant]
  7. GABAPENTIN [Concomitant]
  8. PRILOSEC [Concomitant]
  9. LORTAB [Concomitant]
  10. LISINOPRIL [Concomitant]
  11. OMEPRAZOLE [Concomitant]

REACTIONS (9)
  - ABDOMINAL PAIN [None]
  - ANTICOAGULATION DRUG LEVEL ABOVE THERAPEUTIC [None]
  - ASTHENIA [None]
  - DEHYDRATION [None]
  - HYPERSOMNIA [None]
  - INTERNATIONAL NORMALISED RATIO INCREASED [None]
  - OVARIAN NEOPLASM [None]
  - RENAL FAILURE ACUTE [None]
  - UNEVALUABLE EVENT [None]
